FAERS Safety Report 22186189 (Version 1)
Quarter: 2023Q2

REPORT INFORMATION
  Report Type: Spontaneous
  Country: GB (occurrence: None)
  Receive Date: 20230407
  Receipt Date: 20230407
  Transmission Date: 20230721
  Serious: Yes (Hospitalization)
  Sender: FDA-Public Use
  Company Number: 2023A075412

PATIENT
  Age: 63 Year
  Sex: Male
  Weight: 90 kg

DRUGS (10)
  1. DAPAGLIFLOZIN [Suspect]
     Active Substance: DAPAGLIFLOZIN
     Indication: Cardiac failure
     Dates: end: 20230315
  2. ALLOPURINOL [Concomitant]
     Active Substance: ALLOPURINOL
  3. ATORVASTATIN [Concomitant]
     Active Substance: ATORVASTATIN
  4. BISOPROLOL [Concomitant]
     Active Substance: BISOPROLOL
  5. BUMETANIDE [Concomitant]
     Active Substance: BUMETANIDE
  6. DIGOXIN [Concomitant]
     Active Substance: DIGOXIN
  7. EPLERENONE [Concomitant]
     Active Substance: EPLERENONE
  8. LORATADINE [Concomitant]
     Active Substance: LORATADINE
  9. SACUBITRIL\VALSARTAN [Concomitant]
     Active Substance: SACUBITRIL\VALSARTAN
  10. WARFARIN [Concomitant]
     Active Substance: WARFARIN

REACTIONS (12)
  - Fournier^s gangrene [Recovering/Resolving]
  - Orthopnoea [Unknown]
  - Oedema peripheral [Unknown]
  - Urinary retention [Unknown]
  - Infection [Unknown]
  - White blood cell count increased [Unknown]
  - C-reactive protein increased [Unknown]
  - International normalised ratio increased [Unknown]
  - Scrotal swelling [Unknown]
  - Haemorrhage [Unknown]
  - Necrosis [Unknown]
  - Malaise [Unknown]

NARRATIVE: CASE EVENT DATE: 20230315
